FAERS Safety Report 4649365-6 (Version None)
Quarter: 2005Q2

REPORT INFORMATION
  Report Type: 
  Country: None (occurrence: None)
  Receive Date: 20050428
  Receipt Date: 20050428
  Transmission Date: 20051028
  Serious: Yes (Hospitalization, Other)
  Sender: FDA-Public Use
  Company Number: None

PATIENT
  Age: 70 Year
  Sex: Male
  Weight: 60.8 kg

DRUGS (4)
  1. ASPIRIN [Suspect]
     Indication: DRUG USE FOR UNKNOWN INDICATION
     Dosage: ASA  81MG   2 1/2 WKS BEFORE ADMISSION
  2. COUMADIN [Suspect]
     Indication: MEDICAL DEVICE IMPLANTATION
     Dates: start: 19990101
  3. FOSINAPRIL [Concomitant]
  4. SIMVASTATIN [Concomitant]

REACTIONS (5)
  - ANAEMIA [None]
  - DIZZINESS [None]
  - EPISTAXIS [None]
  - GASTROINTESTINAL HAEMORRHAGE [None]
  - MELAENA [None]
